FAERS Safety Report 9688129 (Version 1)
Quarter: 2013Q4

REPORT INFORMATION
  Report Type: Spontaneous
  Country: US (occurrence: US)
  Receive Date: 20131114
  Receipt Date: 20131114
  Transmission Date: 20140711
  Serious: Yes (Other)
  Sender: FDA-Public Use
  Company Number: US-ELI_LILLY_AND_COMPANY-US201311002837

PATIENT
  Sex: Female

DRUGS (3)
  1. CYMBALTA [Suspect]
     Indication: ANXIETY
     Dosage: 40 MG, QD
     Route: 065
  2. CYMBALTA [Suspect]
     Indication: NEURALGIA
     Dosage: 20 MG, QD
     Route: 065
  3. PROGESTERONE [Concomitant]
     Indication: VAGINAL HAEMORRHAGE
     Dosage: UNK, UNKNOWN
     Route: 065

REACTIONS (4)
  - Coeliac disease [Unknown]
  - Haemorrhage [Unknown]
  - Vaginal haemorrhage [Unknown]
  - Abdominal discomfort [Unknown]
